FAERS Safety Report 21589180 (Version 3)
Quarter: 2023Q1

REPORT INFORMATION
  Report Type: Spontaneous
  Country: US (occurrence: US)
  Receive Date: 20221114
  Receipt Date: 20230116
  Transmission Date: 20230417
  Serious: No
  Sender: FDA-Public Use
  Company Number: US-BIOVITRUM-2022US13084

PATIENT
  Sex: Female

DRUGS (2)
  1. KINERET [Suspect]
     Active Substance: ANAKINRA
     Indication: Rheumatoid arthritis
     Dates: start: 20191126
  2. KINERET [Suspect]
     Active Substance: ANAKINRA
     Dates: start: 201911

REACTIONS (6)
  - Sinusitis [Unknown]
  - Urinary tract infection [Unknown]
  - Muscle spasms [Unknown]
  - Constipation [Unknown]
  - Haemorrhoids [Unknown]
  - Drug hypersensitivity [Unknown]
